FAERS Safety Report 10526238 (Version 1)
Quarter: 2014Q4

REPORT INFORMATION
  Report Type: Spontaneous
  Country: US (occurrence: US)
  Receive Date: 20141017
  Receipt Date: 20141017
  Transmission Date: 20150528
  Serious: Yes (Other)
  Sender: FDA-Public Use
  Company Number: US-ROXANE LABORATORIES, INC.-2014-RO-01575RO

PATIENT
  Sex: Female

DRUGS (1)
  1. PREDNISONE. [Suspect]
     Active Substance: PREDNISONE
     Indication: AUTOIMMUNE DISORDER
     Dosage: 2 MG
     Route: 065

REACTIONS (4)
  - Arthralgia [Unknown]
  - Epstein-Barr virus infection [Unknown]
  - Mononucleosis syndrome [Unknown]
  - Deafness transitory [Recovered/Resolved]
